FAERS Safety Report 4800023-4 (Version None)
Quarter: 2005Q4

REPORT INFORMATION
  Report Type: 
  Country: None (occurrence: None)
  Receive Date: 20051017
  Receipt Date: 20051005
  Transmission Date: 20060501
  Serious: Yes (Hospitalization)
  Sender: FDA-Public Use
  Company Number: US-JNJFOC-20051001081

PATIENT
  Sex: Female
  Weight: 86.18 kg

DRUGS (9)
  1. REMICADE [Suspect]
     Dosage: 3 VIALS
     Route: 042
  2. REMICADE [Suspect]
     Indication: RHEUMATOID ARTHRITIS
     Dosage: 3 VIALS
     Route: 042
  3. SYNTHROID [Concomitant]
  4. ESTRADIOL [Concomitant]
     Indication: HORMONE REPLACEMENT THERAPY
  5. PREDNISONE [Concomitant]
     Indication: RHEUMATOID ARTHRITIS
  6. METHOTREXATE [Concomitant]
     Indication: RHEUMATOID ARTHRITIS
  7. ACTINEL [Concomitant]
  8. MIACALCIN [Concomitant]
     Route: 045
  9. LISINOPRIL [Concomitant]
     Dates: start: 20050901

REACTIONS (4)
  - ARTERIAL STENT INSERTION [None]
  - CATHETERISATION CARDIAC [None]
  - CHEST PAIN [None]
  - DYSPEPSIA [None]
